FAERS Safety Report 19635711 (Version 1)
Quarter: 2021Q3

REPORT INFORMATION
  Report Type: Report from Study
  Country: CA (occurrence: CA)
  Receive Date: 20210730
  Receipt Date: 20210730
  Transmission Date: 20211014
  Serious: Yes (Other)
  Sender: FDA-Public Use
  Company Number: CA-ASTRAZENECA-2020SE58747

PATIENT
  Sex: Female

DRUGS (12)
  1. PREDNISONE. [Concomitant]
     Active Substance: PREDNISONE
  2. SYNTHROID [Concomitant]
     Active Substance: LEVOTHYROXINE SODIUM
  3. ITRACONAZOLE. [Concomitant]
     Active Substance: ITRACONAZOLE
     Dosage: UNKNOWN
     Route: 065
  4. FASENRA [Suspect]
     Active Substance: BENRALIZUMAB
     Indication: NODULE
     Dosage: 30.0MG UNKNOWN
     Route: 058
     Dates: start: 20190715
  5. AMITRIPTYLINE [Concomitant]
     Active Substance: AMITRIPTYLINE
  6. TUDORZA GENUAIR [Concomitant]
     Active Substance: ACLIDINIUM BROMIDE
  7. DESMOPRESSIN SPRAY [Concomitant]
     Active Substance: DESMOPRESSIN
  8. FASENRA [Suspect]
     Active Substance: BENRALIZUMAB
     Indication: ASTHMA
     Dosage: 30.0MG UNKNOWN
     Route: 058
     Dates: start: 20190715
  9. SYMBICORT [Concomitant]
     Active Substance: BUDESONIDE\FORMOTEROL FUMARATE DIHYDRATE
  10. DILTIAZEM. [Concomitant]
     Active Substance: DILTIAZEM
  11. VENTOLIN [Concomitant]
     Active Substance: ALBUTEROL SULFATE
  12. TOPIRAMATE. [Concomitant]
     Active Substance: TOPIRAMATE

REACTIONS (9)
  - Pulmonary mass [Unknown]
  - Decreased activity [Unknown]
  - Non-cardiac chest pain [Unknown]
  - Dyspnoea [Recovering/Resolving]
  - Cough [Unknown]
  - Exercise tolerance decreased [Unknown]
  - Pneumonia fungal [Unknown]
  - Toxicity to various agents [Unknown]
  - Cerebral fungal infection [Unknown]
